FAERS Safety Report 21934873 (Version 1)
Quarter: 2023Q1

REPORT INFORMATION
  Report Type: Spontaneous
  Country: US (occurrence: US)
  Receive Date: 20230201
  Receipt Date: 20230201
  Transmission Date: 20230418
  Serious: Yes (Hospitalization)
  Sender: FDA-Public Use
  Company Number: US-STRIDES ARCOLAB LIMITED-2023SP001449

PATIENT
  Age: 10 Year
  Sex: Male

DRUGS (9)
  1. METHOTREXATE [Suspect]
     Active Substance: METHOTREXATE
     Indication: T-cell type acute leukaemia
     Dosage: UNK, INITIAL DOSE UNKNOWN, CYCLICAL
     Route: 048
  2. METHOTREXATE [Suspect]
     Active Substance: METHOTREXATE
     Dosage: UNK. RECEIVED 125% OF THE ORIGINAL DOSE, WHICH HAD BEEN RECENTLY INCREASED IN CYCLE 5, CYCLICAL
     Route: 048
  3. METHOTREXATE [Suspect]
     Active Substance: METHOTREXATE
     Dosage: UNK, RE-INITIATED ON CHEMOTHERAPY, CYCLICAL
     Route: 065
  4. VINCRISTINE [Suspect]
     Active Substance: VINCRISTINE
     Indication: T-cell type acute leukaemia
     Dosage: 1.5 MILLIGRAM/SQ. METER (RECEIVED ON DAY 1 TO 5), CYCLICAL
     Route: 065
  5. VINCRISTINE [Suspect]
     Active Substance: VINCRISTINE
     Dosage: UNK, RE-INITIATED ON CHEMOTHERAPY, CYCLICAL
     Route: 065
  6. MERCAPTOPURINE [Suspect]
     Active Substance: MERCAPTOPURINE
     Indication: T-cell type acute leukaemia
     Dosage: UNK, INITIAL DOSE UNKNOWN, CYCLICAL
     Route: 065
  7. MERCAPTOPURINE [Suspect]
     Active Substance: MERCAPTOPURINE
     Dosage: UNK. RECEIVED 120% OF THE ORIGINAL DOSE, WHICH HAD BEEN RECENTLY INCREASED IN CYCLE 5, CYCLICAL
     Route: 065
  8. DEXAMETHASONE [Concomitant]
     Active Substance: DEXAMETHASONE
     Indication: T-cell type acute leukaemia
     Dosage: 3 MILLIGRAM/SQ. METER, BID, RECEIVED ON DAY 1 TO 5, CYCLICAL
     Route: 048
  9. DEXAMETHASONE [Concomitant]
     Active Substance: DEXAMETHASONE
     Dosage: UNK, RE-INITIATED ON CHEMOTHERAPY, CYCLICAL
     Route: 065

REACTIONS (2)
  - Venoocclusive liver disease [Recovered/Resolved]
  - Portal hypertension [Recovered/Resolved]
